FAERS Safety Report 9262691 (Version 1)
Quarter: 2013Q2

REPORT INFORMATION
  Report Type: Spontaneous
  Country: US (occurrence: None)
  Receive Date: 20130426
  Receipt Date: 20130426
  Transmission Date: 20140414
  Serious: No
  Sender: FDA-Public Use
  Company Number: None

PATIENT
  Age: 56 Year
  Sex: Male

DRUGS (7)
  1. REVLIMID [Suspect]
     Indication: PLASMA CELL MYELOMA
     Route: 048
     Dates: start: 20130130, end: 20130204
  2. REVLIMID [Concomitant]
     Indication: PLASMA CELL MYELOMA
     Route: 048
     Dates: start: 20130213, end: 20130327
  3. WARFARIN [Concomitant]
  4. METOPROLOL [Concomitant]
  5. GEMFIBROZIL [Concomitant]
  6. ACYCLOVIR [Concomitant]
  7. ALLOPURINOL [Concomitant]

REACTIONS (3)
  - Rash [None]
  - Arthralgia [None]
  - Dysgeusia [None]
